FAERS Safety Report 4482057-5 (Version None)
Quarter: 2004Q3

REPORT INFORMATION
  Report Type: 
  Country: None (occurrence: None)
  Receive Date: 20040921
  Receipt Date: 20031024
  Transmission Date: 20050211
  Serious: Yes (Hospitalization)
  Sender: FDA-Public Use
  Company Number: 2002-07-0199(2)

PATIENT
  Age: 59 Year
  Sex: Male

DRUGS (11)
  1. THALOMID [Suspect]
     Indication: MULTIPLE MYELOMA
     Dosage: 50-600 MG, QD, ORAL
     Route: 048
     Dates: start: 20011207, end: 20031021
  2. COUMADIN [Concomitant]
  3. AVANDIA [Concomitant]
  4. TOPROL-XL [Concomitant]
  5. ZOCOR [Concomitant]
  6. ZESTRIL [Concomitant]
  7. DEMADEX [Concomitant]
  8. FENOFIBRATE [Concomitant]
  9. ASPIRIN [Concomitant]
  10. COREG [Concomitant]
  11. DIOVAN [Concomitant]

REACTIONS (16)
  - ABDOMINAL DISTENSION [None]
  - ASTHENIA [None]
  - CARDIAC FAILURE CONGESTIVE [None]
  - CONSTIPATION [None]
  - DRY SKIN [None]
  - DYSPNOEA EXERTIONAL [None]
  - EPIGASTRIC DISCOMFORT [None]
  - FALL [None]
  - INSOMNIA [None]
  - INTRACARDIAC THROMBUS [None]
  - LIMB DISCOMFORT [None]
  - LOSS OF CONSCIOUSNESS [None]
  - MUSCULOSKELETAL DISCOMFORT [None]
  - MYOCARDIAL INFARCTION [None]
  - OEDEMA [None]
  - VENTRICULAR DYSFUNCTION [None]
